FAERS Safety Report 23243449 (Version 2)
Quarter: 2024Q1

REPORT INFORMATION
  Report Type: Spontaneous
  Country: US (occurrence: US)
  Receive Date: 20231130
  Receipt Date: 20240102
  Transmission Date: 20240410
  Serious: No
  Sender: FDA-Public Use
  Company Number: US-AMGEN-USASP2023212971

PATIENT
  Age: 61 Year
  Sex: Female

DRUGS (7)
  1. OTEZLA [Suspect]
     Active Substance: APREMILAST
     Indication: Lepromatous leprosy
     Dosage: 10/20/30 TITR PACK, TAKE AS DIRECTED PER PACKAGE INSTRUCTIONS
     Route: 065
  2. OTEZLA [Suspect]
     Active Substance: APREMILAST
     Indication: Erythema nodosum
     Dosage: 30 MILLIGRAM, BID
     Route: 048
  3. OTEZLA [Suspect]
     Active Substance: APREMILAST
     Indication: Off label use
  4. PENTOXIFYLLINE [Concomitant]
     Active Substance: PENTOXIFYLLINE
  5. MAGNESIUM [Concomitant]
     Active Substance: MAGNESIUM
  6. METHOTREXATE [Concomitant]
     Active Substance: METHOTREXATE
  7. PREDNISONE [Concomitant]
     Active Substance: PREDNISONE
     Dosage: UNK

REACTIONS (4)
  - Product dose omission issue [Unknown]
  - Off label use [Unknown]
  - Malaise [Unknown]
  - Pain [Not Recovered/Not Resolved]
